FAERS Safety Report 16737390 (Version 1)
Quarter: 2019Q3

REPORT INFORMATION
  Report Type: Spontaneous
  Country: DE (occurrence: DE)
  Receive Date: 20190823
  Receipt Date: 20190823
  Transmission Date: 20191005
  Serious: Yes (Hospitalization, Congenital Anomaly)
  Sender: FDA-Public Use
  Company Number: DE-PERRIGO-19DE009975

PATIENT
  Sex: Male

DRUGS (6)
  1. PIRITRAMIDE [Concomitant]
     Active Substance: PIRITRAMIDE
     Indication: FOETAL EXPOSURE DURING PREGNANCY
     Dosage: UNK (3RD TRIMESTER)
     Route: 065
  2. EPINEPHRINE. [Concomitant]
     Active Substance: EPINEPHRINE
     Indication: FOETAL EXPOSURE DURING PREGNANCY
     Dosage: UNK (3RD TRIMESTER)
     Route: 065
  3. ROPIVACAINE. [Concomitant]
     Active Substance: ROPIVACAINE HYDROCHLORIDE
     Indication: FOETAL EXPOSURE DURING PREGNANCY
     Dosage: UNK (3RD TRIMESTER)
     Route: 065
  4. LORAZEPAM. [Concomitant]
     Active Substance: LORAZEPAM
     Indication: FOETAL EXPOSURE DURING PREGNANCY
     Dosage: UNK (3RD TRIMESTER)
     Route: 065
  5. ACETAMINOPHEN. [Suspect]
     Active Substance: ACETAMINOPHEN
     Indication: FOETAL EXPOSURE DURING PREGNANCY
     Dosage: UNK
     Route: 064
  6. SUFENTANIL [Concomitant]
     Active Substance: SUFENTANIL
     Indication: FOETAL EXPOSURE DURING PREGNANCY
     Dosage: UNK (3RD TRIMESTER)
     Route: 065

REACTIONS (5)
  - Patent ductus arteriosus [Unknown]
  - Pulmonary artery stenosis [Unknown]
  - Premature baby [Unknown]
  - Foetal exposure during pregnancy [Recovered/Resolved]
  - Atrial septal defect [Unknown]
